FAERS Safety Report 14420900 (Version 3)
Quarter: 2025Q1

REPORT INFORMATION
  Report Type: Spontaneous
  Country: US (occurrence: US)
  Receive Date: 20180122
  Receipt Date: 20250213
  Transmission Date: 20250408
  Serious: Yes (Hospitalization, Other)
  Sender: ROCHE
  Company Number: US-ROCHE-1885432

PATIENT
  Age: 80 Year
  Sex: Female
  Weight: 41.73 kg

DRUGS (3)
  1. RITUXAN [Suspect]
     Active Substance: RITUXIMAB
     Indication: Splenic marginal zone lymphoma
     Route: 042
     Dates: end: 201508
  2. GAZYVA [Suspect]
     Active Substance: OBINUTUZUMAB
     Indication: Splenic marginal zone lymphoma
     Route: 042
     Dates: start: 2015
  3. PREDNISONE [Concomitant]
     Active Substance: PREDNISONE

REACTIONS (8)
  - Hypersensitivity [Recovered/Resolved]
  - Splenic marginal zone lymphoma refractory [Unknown]
  - Recurrent cancer [Unknown]
  - Pulmonary thrombosis [Recovered/Resolved]
  - Haemolytic anaemia [Unknown]
  - Rash [Unknown]
  - Platelet count decreased [Unknown]
  - Off label use [Unknown]

NARRATIVE: CASE EVENT DATE: 20150806
